FAERS Safety Report 10787675 (Version 1)
Quarter: 2015Q1

REPORT INFORMATION
  Report Type: Spontaneous
  Country: CN (occurrence: None)
  Receive Date: 20150210
  Receipt Date: 20150210
  Transmission Date: 20150721
  Serious: Yes (Death, Life-Threatening)
  Sender: FDA-Public Use
  Company Number: FK201500636

PATIENT
  Age: 72 Year
  Sex: Female

DRUGS (1)
  1. HYDRALAZINE [Suspect]
     Active Substance: HYDRALAZINE HYDROCHLORIDE
     Indication: HYPERTENSION

REACTIONS (3)
  - Toxic epidermal necrolysis [None]
  - Cardiac arrest [None]
  - Sepsis [None]
